FAERS Safety Report 8784759 (Version 1)
Quarter: 2012Q4

REPORT INFORMATION
  Report Type: 
  Country: US (occurrence: US)
  Receive Date: 20120914
  Receipt Date: 20120914
  Transmission Date: 20130627
  Serious: Yes (Hospitalization)
  Sender: FDA-Public Use
  Company Number: US-ELI_LILLY_AND_COMPANY-US201208006701

PATIENT
  Sex: Male
  Weight: 70.3 kg

DRUGS (1)
  1. EFFIENT [Suspect]
     Dosage: UNK
     Dates: start: 20120301

REACTIONS (1)
  - Cardiac stress test [Unknown]
